FAERS Safety Report 9251961 (Version 7)
Quarter: 2014Q4

REPORT INFORMATION
  Report Type: Report from Study
  Country: US (occurrence: US)
  Receive Date: 20130424
  Receipt Date: 20141006
  Transmission Date: 20150529
  Serious: Yes (Hospitalization)
  Sender: FDA-Public Use
  Company Number: US-ACTELION-A-NJ2013-82164

PATIENT
  Age: 58 Year
  Sex: Female

DRUGS (6)
  1. VELETRI [Suspect]
     Active Substance: EPOPROSTENOL
     Dosage: 32 NG/KG, UNK
     Route: 042
     Dates: start: 20130412
  2. VELETRI [Suspect]
     Active Substance: EPOPROSTENOL
     Dosage: 31 NG/KG, PER MIN
     Route: 042
  3. LETAIRIS [Concomitant]
     Active Substance: AMBRISENTAN
  4. VELETRI [Suspect]
     Active Substance: EPOPROSTENOL
     Indication: PULMONARY ARTERIAL HYPERTENSION
     Dosage: 2.5 NG/KG, PER MIN
     Route: 041
     Dates: start: 20130412
  5. ADCIRCA [Concomitant]
     Active Substance: TADALAFIL
  6. COUMADIN [Concomitant]
     Active Substance: WARFARIN SODIUM

REACTIONS (14)
  - Blister [Unknown]
  - Fatigue [Unknown]
  - Oedema [Unknown]
  - Fluid retention [Unknown]
  - Catheter site erythema [Unknown]
  - Pulmonary oedema [Unknown]
  - Skin reaction [Unknown]
  - Dehydration [Unknown]
  - Dyspnoea [Unknown]
  - Pain in jaw [Unknown]
  - Abdominal distension [Unknown]
  - Abdominal pain [Unknown]
  - Oedema peripheral [Unknown]
  - Malaise [Unknown]

NARRATIVE: CASE EVENT DATE: 201304
